FAERS Safety Report 8801540 (Version 1)
Quarter: 2012Q4

REPORT INFORMATION
  Report Type: 
  Country: US (occurrence: US)
  Receive Date: 20120921
  Receipt Date: 20120921
  Transmission Date: 20130627
  Serious: No
  Sender: FDA-Public Use
  Company Number: US-JNJFOC-20120904112

PATIENT
  Age: 37 Year
  Sex: Female
  Weight: 99.34 kg

DRUGS (11)
  1. SANDOZ FENTANYL TRANSDERMAL SYSTEM [Suspect]
     Indication: INTERVERTEBRAL DISC PROTRUSION
     Route: 062
     Dates: start: 20120906
  2. SANDOZ FENTANYL TRANSDERMAL SYSTEM [Suspect]
     Indication: HIP FRACTURE
     Route: 062
     Dates: start: 20120906
  3. SANDOZ FENTANYL TRANSDERMAL SYSTEM [Suspect]
     Indication: NEOPLASM
     Route: 062
     Dates: start: 20120906
  4. SANDOZ FENTANYL TRANSDERMAL SYSTEM [Suspect]
     Indication: SPINAL COLUMN STENOSIS
     Route: 062
     Dates: start: 20120906
  5. CLONIDINE [Concomitant]
     Indication: ANXIETY
     Route: 048
     Dates: start: 201112
  6. AMITRIPTYLINE [Concomitant]
     Indication: SLEEP DISORDER THERAPY
     Route: 048
     Dates: start: 20120818
  7. PERCOCET [Concomitant]
     Indication: BACK PAIN
     Route: 048
     Dates: start: 201203
  8. PERCOCET [Concomitant]
     Indication: NECK PAIN
     Route: 048
     Dates: start: 201203
  9. FLEXERIL [Concomitant]
     Indication: MUSCLE RELAXANT THERAPY
     Route: 048
     Dates: start: 2009
  10. ESTROGEN [Concomitant]
     Indication: HYSTERECTOMY
     Route: 048
     Dates: start: 20120302
  11. PAXIL [Concomitant]
     Indication: DEPRESSION
     Route: 048
     Dates: start: 20120818

REACTIONS (1)
  - Wrong technique in drug usage process [Recovered/Resolved]
